FAERS Safety Report 13676471 (Version 2)
Quarter: 2017Q2

REPORT INFORMATION
  Report Type: Report from Study
  Country: None (occurrence: CH)
  Receive Date: 20170622
  Receipt Date: 20170623
  Transmission Date: 20170830
  Serious: Yes (Death)
  Sender: FDA-Public Use
  Company Number: CH-ABBVIE-17P-151-1953243-00

PATIENT
  Age: 73 Year
  Sex: Male

DRUGS (1)
  1. DUODOPA [Suspect]
     Active Substance: CARBIDOPA\LEVODOPA
     Indication: PARKINSON^S DISEASE
     Dosage: AM DOSE:7,0ML CONT RATE:DAY4,4ML/H, PMT:3,6ML/H ED:3.5ML,ED LOCK TIME0.5H, 24H THERAPY
     Route: 050
     Dates: start: 20130321

REACTIONS (17)
  - Urinary tract infection [Unknown]
  - Abdominal distension [Unknown]
  - General physical health deterioration [Fatal]
  - Feeding disorder [Unknown]
  - Weight decreased [Unknown]
  - Device dislocation [Recovered/Resolved]
  - Freezing phenomenon [Unknown]
  - Parosmia [Unknown]
  - Stoma site infection [Unknown]
  - Polyneuropathy [Unknown]
  - Decreased appetite [Unknown]
  - Anxiety [Unknown]
  - Vitamin B complex deficiency [Unknown]
  - Hallucination [Recovered/Resolved]
  - Mood altered [Unknown]
  - Abasia [Unknown]
  - Embedded device [Unknown]

NARRATIVE: CASE EVENT DATE: 201704
